FAERS Safety Report 5727596-1 (Version None)
Quarter: 2008Q2

REPORT INFORMATION
  Report Type: 
  Country: None (occurrence: None)
  Receive Date: 20080428
  Receipt Date: 20070926
  Transmission Date: 20081010
  Serious: Yes (Hospitalization)
  Sender: FDA-Public Use
  Company Number: 162505USA

PATIENT
  Sex: Female

DRUGS (6)
  1. OXYCODONE HCL EXTENDED-RELEASE [Suspect]
     Indication: PAIN
     Dosage: (20 MG),ORAL
     Route: 048
     Dates: start: 20070101, end: 20070101
  2. OXYCODONE AND ACETAMINOPHEN [Concomitant]
  3. TERBINAFINE HCL [Concomitant]
  4. ANTIBIOTICS (NOS) [Concomitant]
  5. PROMETHAZINE [Concomitant]
  6. STEROID EYE DROPS [Concomitant]

REACTIONS (3)
  - CONDITION AGGRAVATED [None]
  - DRUG INEFFECTIVE [None]
  - PAIN [None]
